FAERS Safety Report 6094363-1 (Version None)
Quarter: 2009Q1

REPORT INFORMATION
  Report Type: 
  Country: None (occurrence: None)
  Receive Date: 20090224
  Receipt Date: 20090213
  Transmission Date: 20090719
  Serious: Yes (Hospitalization)
  Sender: FDA-Public Use
  Company Number: 2009-191522-NL

PATIENT
  Age: 72 Year
  Sex: Female

DRUGS (3)
  1. MIRTAZAPINE [Suspect]
     Dosage: 15 MG
     Dates: start: 20080606, end: 20080608
  2. LORMETAZEPAM [Suspect]
     Dosage: 1 MG
     Dates: start: 20080606, end: 20080608
  3. DIAZEPAM [Suspect]
     Dosage: DF
     Dates: start: 20080606, end: 20080608

REACTIONS (3)
  - CHILLS [None]
  - DISORIENTATION [None]
  - MUSCULOSKELETAL STIFFNESS [None]
